FAERS Safety Report 4997928-0 (Version None)
Quarter: 2006Q2

REPORT INFORMATION
  Report Type: 
  Country: None (occurrence: None)
  Receive Date: 20060508
  Receipt Date: 20060426
  Transmission Date: 20061013
  Serious: Yes (Hospitalization, Other)
  Sender: FDA-Public Use
  Company Number: 2006056922

PATIENT
  Age: 46 Year
  Sex: Female
  Weight: 63.5036 kg

DRUGS (7)
  1. BEXTRA [Suspect]
     Indication: TENDON INJURY
     Dosage: 20 MG (20 MG, 1 IN 1 D)
     Dates: start: 20040614
  2. ADVIL [Concomitant]
  3. ASPIRIN [Concomitant]
  4. DEMEROL [Concomitant]
  5. MORPHINE [Concomitant]
  6. ACETAMINOPHEN [Concomitant]
  7. VIOXX [Concomitant]

REACTIONS (2)
  - CEREBROVASCULAR ACCIDENT [None]
  - PAIN IN EXTREMITY [None]
